FAERS Safety Report 8962670 (Version 1)
Quarter: 2012Q4

REPORT INFORMATION
  Report Type: 
  Country: US (occurrence: US)
  Receive Date: 20121214
  Receipt Date: 20121214
  Transmission Date: 20130627
  Serious: No
  Sender: FDA-Public Use
  Company Number: US-BAYER-2012-131237

PATIENT
  Age: 81 Year
  Sex: Female

DRUGS (3)
  1. ALEVE CAPLET/TABLET,MIDOL EXTENDED RELIEF CAPLET [Suspect]
     Indication: PAIN RELIEF
     Dosage: 1 DF, BID
     Route: 048
     Dates: start: 20121209
  2. AZOPT [Concomitant]
  3. LUMIGAN [Concomitant]

REACTIONS (3)
  - Nausea [Recovered/Resolved]
  - Drug ineffective [None]
  - Pain [None]
